FAERS Safety Report 5127782-8 (Version None)
Quarter: 2006Q4

REPORT INFORMATION
  Report Type: 
  Country: None (occurrence: None)
  Receive Date: 20061016
  Receipt Date: 20060708
  Transmission Date: 20070319
  Serious: Yes (Hospitalization)
  Sender: FDA-Public Use
  Company Number: US-ROCHE-454879

PATIENT
  Age: 55 Year
  Sex: Female
  Weight: 58.1 kg

DRUGS (9)
  1. PEGASYS [Suspect]
     Route: 058
     Dates: start: 20060518, end: 20060710
  2. COPEGUS [Suspect]
     Route: 048
     Dates: start: 20060518, end: 20060710
  3. PAIN MEDICATION NOS [Concomitant]
     Indication: PAIN
  4. ATIVAN [Concomitant]
     Route: 048
     Dates: start: 20060615
  5. BENICAR HCT [Concomitant]
     Indication: HYPERTENSION
     Route: 048
  6. LIPITOR [Concomitant]
  7. ASPIRIN [Concomitant]
  8. LEXAPRO [Concomitant]
  9. LORCET-HD [Concomitant]
     Dosage: 10/500 TWICE DAILY TO FOUR TIMES DAILY.

REACTIONS (16)
  - AGITATION [None]
  - ANAEMIA MACROCYTIC [None]
  - DEHYDRATION [None]
  - DRUG SCREEN POSITIVE [None]
  - FALL [None]
  - GASTROENTERITIS VIRAL [None]
  - HALLUCINATION [None]
  - HEAD INJURY [None]
  - HYPOKALAEMIA [None]
  - HYPOTENSION [None]
  - PSYCHOTIC DISORDER [None]
  - RENAL FAILURE ACUTE [None]
  - SPINAL OSTEOARTHRITIS [None]
  - SYNCOPE [None]
  - SYNCOPE VASOVAGAL [None]
  - TREMOR [None]
